FAERS Safety Report 8521542-3 (Version None)
Quarter: 2012Q3

REPORT INFORMATION
  Report Type: 
  Country: None (occurrence: None)
  Receive Date: 20120719
  Receipt Date: 20120713
  Transmission Date: 20120928
  Serious: Yes (Hospitalization)
  Sender: FDA-Public Use
  Company Number: PHHY2012CA061073

PATIENT
  Sex: Male

DRUGS (1)
  1. SANDOSTATIN LAR [Suspect]
     Indication: GORHAM'S DISEASE
     Dosage: 30 MG, QMO
     Route: 030
     Dates: start: 20031001

REACTIONS (3)
  - PNEUMONIA [None]
  - DELIRIUM [None]
  - ENERGY INCREASED [None]
